FAERS Safety Report 21165920 (Version 1)
Quarter: 2022Q3

REPORT INFORMATION
  Report Type: Spontaneous
  Country: RU (occurrence: RU)
  Receive Date: 20220803
  Receipt Date: 20220803
  Transmission Date: 20221027
  Serious: Yes (Other)
  Sender: FDA-Public Use
  Company Number: RU-NOVARTISPH-NVSC2022RU175090

PATIENT
  Age: 44 Year
  Sex: Female

DRUGS (1)
  1. AFINITOR [Suspect]
     Active Substance: EVEROLIMUS
     Indication: Renal hamartoma
     Dosage: 10 MG, QD
     Route: 048
     Dates: start: 20220729

REACTIONS (4)
  - Furuncle [Recovering/Resolving]
  - Face oedema [Recovering/Resolving]
  - Stomatitis [Recovering/Resolving]
  - Headache [Recovering/Resolving]
